FAERS Safety Report 9252847 (Version 2)
Quarter: 2013Q4

REPORT INFORMATION
  Report Type: Report from Study
  Country: US (occurrence: US)
  Receive Date: 20130424
  Receipt Date: 20131023
  Transmission Date: 20140711
  Serious: Yes (Hospitalization)
  Sender: FDA-Public Use
  Company Number: US-ELI_LILLY_AND_COMPANY-US201207000757

PATIENT
  Age: 81 Year
  Sex: Female
  Weight: 51.26 kg

DRUGS (3)
  1. TERIPARATIDE [Suspect]
     Indication: OSTEOPOROSIS
     Dosage: 20 UG, UNK
     Route: 065
     Dates: start: 20120526
  2. TERIPARATIDE [Suspect]
     Dosage: 20 UG, QD
     Route: 065
  3. TERIPARATIDE [Suspect]
     Dosage: 20 UG, QD
     Route: 065

REACTIONS (14)
  - Bronchitis [Unknown]
  - Influenza [Unknown]
  - Pneumonia [Unknown]
  - Spinal osteoarthritis [Unknown]
  - Blood pressure increased [Recovered/Resolved]
  - Fall [Unknown]
  - Pain [Unknown]
  - Contusion [Unknown]
  - Fall [Unknown]
  - Pain [Unknown]
  - Contusion [Unknown]
  - Fall [Unknown]
  - Fatigue [Unknown]
  - Drug dose omission [Unknown]
